FAERS Safety Report 12391103 (Version 6)
Quarter: 2016Q4

REPORT INFORMATION
  Report Type: Spontaneous
  Country: US (occurrence: US)
  Receive Date: 20160520
  Receipt Date: 20161222
  Transmission Date: 20170207
  Serious: Yes (Hospitalization, Other)
  Sender: FDA-Public Use
  Company Number: US-PFIZER INC-2016260370

PATIENT
  Age: 73 Year
  Sex: Female

DRUGS (1)
  1. XELJANZ [Suspect]
     Active Substance: TOFACITINIB CITRATE
     Indication: ARTHRITIS
     Dosage: 10 MG, 2X/DAY
     Dates: start: 20160501

REACTIONS (5)
  - Pneumonia [Unknown]
  - Influenza like illness [Recovered/Resolved]
  - General physical health deterioration [Unknown]
  - Diarrhoea [Recovered/Resolved]
  - Gastric ulcer [Unknown]

NARRATIVE: CASE EVENT DATE: 2016
